FAERS Safety Report 7215583-6 (Version None)
Quarter: 2011Q1

REPORT INFORMATION
  Report Type: 
  Country: None (occurrence: None)
  Receive Date: 20110107
  Receipt Date: 20110105
  Transmission Date: 20110831
  Serious: Yes (Hospitalization)
  Sender: FDA-Public Use
  Company Number: FR-ROCHE-751723

PATIENT
  Age: 59 Year
  Sex: Male

DRUGS (3)
  1. ROCEPHIN [Suspect]
     Route: 065
     Dates: start: 20100101
  2. OFLOCET [Suspect]
     Route: 065
     Dates: start: 20100101
  3. FLAGYL [Suspect]
     Route: 042
     Dates: start: 20100101

REACTIONS (1)
  - LEUKOCYTOCLASTIC VASCULITIS [None]
